FAERS Safety Report 13831771 (Version 1)
Quarter: 2017Q3

REPORT INFORMATION
  Report Type: Spontaneous
  Country: US (occurrence: US)
  Receive Date: 20170803
  Receipt Date: 20170803
  Transmission Date: 20171127
  Serious: No
  Sender: FDA-Public Use
  Company Number: US-ROCHE-677220

PATIENT
  Age: 83 Year
  Sex: Female

DRUGS (2)
  1. BONIVA [Suspect]
     Active Substance: IBANDRONATE SODIUM
     Route: 048
  2. BONIVA [Suspect]
     Active Substance: IBANDRONATE SODIUM
     Indication: PRODUCT USED FOR UNKNOWN INDICATION
     Dosage: PATIENT TOOK TWO DOSES OF BONIVA 150 MG WITHIN 2 DAYS OF EACH OTHER
     Route: 048

REACTIONS (2)
  - Inappropriate schedule of drug administration [Unknown]
  - No adverse event [Unknown]

NARRATIVE: CASE EVENT DATE: 20091129
